FAERS Safety Report 8061967-6 (Version None)
Quarter: 2012Q1

REPORT INFORMATION
  Report Type: 
  Country: None (occurrence: None)
  Receive Date: 20120117
  Receipt Date: 20120109
  Transmission Date: 20120608
  Serious: Yes (Death)
  Sender: FDA-Public Use
  Company Number: 2012MA000496

PATIENT
  Sex: Female

DRUGS (4)
  1. OXYMORPHONE HYDROCHLORIDE [Suspect]
     Indication: SUBSTANCE USE
  2. ALPRAZOLAM [Suspect]
     Indication: SUBSTANCE USE
  3. A-HYDROXYALPRAZOLAM [Suspect]
  4. BENZODIAZEPINES [Suspect]

REACTIONS (8)
  - OVERDOSE [None]
  - LOSS OF CONSCIOUSNESS [None]
  - UNRESPONSIVE TO STIMULI [None]
  - WRONG TECHNIQUE IN DRUG USAGE PROCESS [None]
  - TOXICITY TO VARIOUS AGENTS [None]
  - DRUG ABUSE [None]
  - ACCIDENTAL DEATH [None]
  - DYSPNOEA [None]
